FAERS Safety Report 5568394-1 (Version None)
Quarter: 2007Q4

REPORT INFORMATION
  Report Type: 
  Country: None (occurrence: None)
  Receive Date: 20071220
  Receipt Date: 20071211
  Transmission Date: 20080405
  Serious: Yes (Hospitalization)
  Sender: FDA-Public Use
  Company Number: US-AMGEN-KDL240058

PATIENT
  Sex: Male

DRUGS (2)
  1. ENBREL [Suspect]
     Indication: RHEUMATOID ARTHRITIS
     Route: 058
     Dates: start: 20070320, end: 20070603
  2. METHOTREXATE [Concomitant]
     Route: 048
     Dates: start: 20050101

REACTIONS (3)
  - CARDIAC TAMPONADE [None]
  - PERICARDIAL EFFUSION [None]
  - PERICARDITIS [None]
